FAERS Safety Report 6612564-8 (Version None)
Quarter: 2010Q1

REPORT INFORMATION
  Report Type: 
  Country: None (occurrence: None)
  Receive Date: 20100303
  Receipt Date: 20100219
  Transmission Date: 20100710
  Serious: Yes (Hospitalization)
  Sender: FDA-Public Use
  Company Number: US-JNJFOC-20100210367

PATIENT
  Age: 4 Year
  Sex: Male

DRUGS (7)
  1. EXTRA STRENGTH TYLENOL [Suspect]
     Route: 048
  2. EXTRA STRENGTH TYLENOL [Suspect]
     Indication: ACCIDENTAL EXPOSURE
     Route: 048
  3. WYGESIC [Suspect]
     Indication: ACCIDENTAL EXPOSURE
     Route: 048
  4. LAMICTAL [Suspect]
     Indication: ACCIDENTAL EXPOSURE
     Route: 048
  5. DILANTIN [Suspect]
     Indication: ACCIDENTAL EXPOSURE
     Route: 048
  6. VALIUM [Suspect]
     Indication: ACCIDENTAL EXPOSURE
     Route: 048
  7. VITAMIN B COMPLEX CAP [Suspect]
     Indication: ACCIDENTAL EXPOSURE
     Route: 048

REACTIONS (6)
  - ACCIDENTAL DRUG INTAKE BY CHILD [None]
  - ALANINE AMINOTRANSFERASE INCREASED [None]
  - ASPARTATE AMINOTRANSFERASE INCREASED [None]
  - NAUSEA [None]
  - PROTHROMBIN TIME PROLONGED [None]
  - VOMITING [None]
